FAERS Safety Report 9831653 (Version 2)
Quarter: 2014Q1

REPORT INFORMATION
  Report Type: Spontaneous
  Country: US (occurrence: US)
  Receive Date: 20140121
  Receipt Date: 20140318
  Transmission Date: 20141002
  Serious: No
  Sender: FDA-Public Use
  Company Number: US-PFIZER INC-2014017214

PATIENT
  Age: 38 Year
  Sex: Female
  Weight: 97.96 kg

DRUGS (13)
  1. XELJANZ [Suspect]
     Indication: RHEUMATOID ARTHRITIS
     Dosage: 5 MG, 2X/DAY
     Route: 048
     Dates: start: 20140212
  2. PREDNISONE [Concomitant]
     Dosage: 10 MG, UNK
  3. METOPROLOL [Concomitant]
     Dosage: UNK
  4. OPANA ER [Concomitant]
     Dosage: 20 MG, UNK
     Route: 048
  5. OPANA ER [Concomitant]
     Dosage: 10 MG, UNK
     Route: 048
  6. KLONOPIN [Concomitant]
     Dosage: 2 MG, UNK
  7. RANITIDINE [Concomitant]
     Dosage: UNK
  8. ADVAIR [Concomitant]
     Dosage: UNK
  9. ZYRTEC [Concomitant]
     Dosage: UNK
  10. OMNARIS [Concomitant]
     Dosage: UNK
     Route: 045
  11. ALBUTEROL [Concomitant]
     Dosage: UNK
  12. ZANAFLEX [Concomitant]
     Indication: MUSCLE RELAXANT THERAPY
     Dosage: 4 MG, UNK
  13. ZANTAC [Concomitant]
     Dosage: 75 MG, UNK

REACTIONS (3)
  - Fatigue [Unknown]
  - Paraesthesia [Unknown]
  - Hypoaesthesia [Unknown]
